FAERS Safety Report 17149951 (Version 1)
Quarter: 2019Q4

REPORT INFORMATION
  Report Type: Spontaneous
  Country: SE (occurrence: SE)
  Receive Date: 20191213
  Receipt Date: 20191213
  Transmission Date: 20200122
  Serious: Yes (Hospitalization)
  Sender: FDA-Public Use
  Company Number: SE-ACCORD-165270

PATIENT
  Age: 20 Year
  Sex: Female

DRUGS (7)
  1. SERTRALINE [Suspect]
     Active Substance: SERTRALINE HYDROCHLORIDE
     Dates: start: 20180729, end: 20180729
  2. ATARAX [Suspect]
     Active Substance: HYDROXYZINE HYDROCHLORIDE
     Dates: start: 20180729, end: 20180729
  3. ALVEDON [Suspect]
     Active Substance: ACETAMINOPHEN
     Dates: start: 20180729, end: 20180729
  4. MIRTAZAPINE. [Suspect]
     Active Substance: MIRTAZAPINE
     Dates: start: 20180729, end: 20180729
  5. PROPAVAN [Suspect]
     Active Substance: PROPIOMAZINE
     Route: 048
     Dates: start: 20180729, end: 20180729
  6. VOXRA [Suspect]
     Active Substance: BUPROPION HYDROCHLORIDE
     Dates: start: 20180729, end: 20180729
  7. IPREN [Suspect]
     Active Substance: IBUPROFEN
     Dates: start: 20180729, end: 20180729

REACTIONS (6)
  - Mydriasis [Unknown]
  - Electrocardiogram QT prolonged [Unknown]
  - Dysarthria [Unknown]
  - Intentional self-injury [Unknown]
  - Intentional overdose [Unknown]
  - Altered state of consciousness [Unknown]

NARRATIVE: CASE EVENT DATE: 20180729
